FAERS Safety Report 10063782 (Version 1)
Quarter: 2014Q2

REPORT INFORMATION
  Report Type: Spontaneous
  Country: US (occurrence: US)
  Receive Date: 20140408
  Receipt Date: 20140408
  Transmission Date: 20141212
  Serious: Yes (Other)
  Sender: FDA-Public Use
  Company Number: US-AMGEN INC.-USASP2014023493

PATIENT
  Age: 54 Year
  Sex: Female

DRUGS (22)
  1. ENBREL [Suspect]
     Indication: PRODUCT USED FOR UNKNOWN INDICATION
     Dosage: 50 MG, QWK
     Route: 065
     Dates: start: 2012
  2. XELJANZ [Suspect]
     Indication: PRODUCT USED FOR UNKNOWN INDICATION
     Dosage: 5 MG, BID
     Route: 065
  3. ARAVA [Suspect]
     Indication: PRODUCT USED FOR UNKNOWN INDICATION
     Dosage: 20 MG, QD
     Route: 065
  4. ORENCIA [Concomitant]
     Dosage: 125 MG, QWK
  5. PLAQUENIL                          /00072602/ [Concomitant]
     Dosage: 200 MG, BID
  6. ARMOUR THYROID [Concomitant]
     Dosage: UNK
  7. CURCUMIN [Concomitant]
     Dosage: UNK
  8. DHEA [Concomitant]
     Dosage: UNK
  9. ESTROGEN [Concomitant]
     Dosage: UNK
  10. KRILL OIL [Concomitant]
     Dosage: UNK
  11. MAGNESIUM [Concomitant]
     Dosage: UNK
  12. MELATONIN [Concomitant]
     Dosage: UNK
  13. PROBIOTIC                          /06395501/ [Concomitant]
     Dosage: UNK
  14. PROMETRIUM                         /00110701/ [Concomitant]
     Dosage: UNK
  15. OMEGA 3                            /01334101/ [Concomitant]
     Dosage: UNK
  16. TESTOSTERONE [Concomitant]
     Dosage: UNK
  17. TRYPTOPHAN                         /00215101/ [Concomitant]
     Dosage: UNK
  18. OMEGA 18/12 FISH OIL [Concomitant]
     Dosage: UNK
  19. VITAMIN C                          /00008001/ [Concomitant]
     Dosage: UNK
  20. VITAMIN D                          /00107901/ [Concomitant]
     Dosage: UNK
  21. BETAINE [Concomitant]
     Dosage: UNK
  22. LUGOL^S SOLUTION [Concomitant]
     Dosage: UNK

REACTIONS (57)
  - Irritable bowel syndrome [Unknown]
  - Upper respiratory tract infection [Unknown]
  - Renal disorder [Unknown]
  - Pain in jaw [Unknown]
  - Fatigue [Unknown]
  - Musculoskeletal discomfort [Unknown]
  - Neck pain [Unknown]
  - Osteoarthritis [Unknown]
  - Drug intolerance [Unknown]
  - Sleep disorder [Unknown]
  - Multiple allergies [Unknown]
  - Spinal osteoarthritis [Unknown]
  - Rheumatic disorder [Unknown]
  - Stress urinary incontinence [Unknown]
  - Hypothyroidism [Unknown]
  - Postmenopause [Unknown]
  - Fibrocystic breast disease [Unknown]
  - Hypertension [Unknown]
  - Anxiety [Unknown]
  - Tooth disorder [Unknown]
  - Diarrhoea [Unknown]
  - Fibroma [Unknown]
  - Lipoma [Unknown]
  - Haemangioma of skin [Unknown]
  - Arthritis [Unknown]
  - Blood cortisol increased [Unknown]
  - Arthropathy [Unknown]
  - Back pain [Unknown]
  - Amnesia [Unknown]
  - Menopausal symptoms [Unknown]
  - Pain [Unknown]
  - Thyroid disorder [Unknown]
  - Effusion [Unknown]
  - Hot flush [Unknown]
  - Musculoskeletal stiffness [Unknown]
  - Hyperhidrosis [Unknown]
  - Pruritus [Unknown]
  - Abdominal discomfort [Unknown]
  - Constipation [Unknown]
  - Bursitis [Unknown]
  - Synovitis [Unknown]
  - Flank pain [Unknown]
  - Disturbance in attention [Unknown]
  - Memory impairment [Unknown]
  - Musculoskeletal pain [Unknown]
  - Stress [Unknown]
  - Arthralgia [Unknown]
  - Joint swelling [Unknown]
  - Rheumatoid arthritis [Unknown]
  - Limb discomfort [Unknown]
  - Crepitations [Unknown]
  - Mental impairment [Unknown]
  - Tenderness [Unknown]
  - Drug ineffective [Unknown]
  - Tooth abscess [Recovered/Resolved]
  - Injection site reaction [Unknown]
  - Laryngitis [Unknown]
